FAERS Safety Report 8643923 (Version 2)
Quarter: 2013Q1

REPORT INFORMATION
  Report Type: Spontaneous
  Country: BR (occurrence: BR)
  Receive Date: 20120629
  Receipt Date: 20130208
  Transmission Date: 20140127
  Serious: Yes (Disabling, Other)
  Sender: FDA-Public Use
  Company Number: PHHY2012BR055689

PATIENT
  Age: 32 Year
  Sex: Male
  Weight: 95 kg

DRUGS (7)
  1. RITALINA [Suspect]
     Indication: ATTENTION DEFICIT/HYPERACTIVITY DISORDER
     Dosage: 1 DF, QD
     Route: 048
  2. RITALINA [Suspect]
     Dosage: 2 DF, QD
     Route: 048
  3. RITALIN LA [Suspect]
     Indication: ATTENTION DEFICIT/HYPERACTIVITY DISORDER
     Dosage: 1 CAPSULE (30MG) DAILY
     Route: 048
  4. RITALIN LA [Suspect]
     Dosage: 1 CAPSULE (40 MG) DAILY
     Route: 048
  5. WELLBUTRIN XL [Concomitant]
     Indication: DEPRESSION
     Dosage: 1 DF, QD
     Route: 048
  6. PURAN T4 [Concomitant]
     Indication: HYPOTHYROIDISM
     Dosage: 1 DF, QD
     Route: 048
  7. CITALOPRAM [Concomitant]
     Indication: DEPRESSION
     Dosage: 2 DF, QD
     Route: 048

REACTIONS (6)
  - Systemic lupus erythematosus [Not Recovered/Not Resolved]
  - Arthralgia [Not Recovered/Not Resolved]
  - Local swelling [Recovered/Resolved]
  - Pain in extremity [Not Recovered/Not Resolved]
  - Sjogren^s syndrome [Not Recovered/Not Resolved]
  - Hypothyroidism [Not Recovered/Not Resolved]
